FAERS Safety Report 9783353 (Version 1)
Quarter: 2013Q4

REPORT INFORMATION
  Report Type: Spontaneous
  Country: US (occurrence: None)
  Receive Date: 20131223
  Receipt Date: 20131223
  Transmission Date: 20140711
  Serious: No
  Sender: FDA-Public Use
  Company Number: CA13-0622

PATIENT
  Sex: 0

DRUGS (1)
  1. ENOXAPARIN SODIUM [Suspect]
     Dosage: BID INJECTION.

REACTIONS (1)
  - Injury associated with device [None]
